FAERS Safety Report 19803190 (Version 1)
Quarter: 2021Q3

REPORT INFORMATION
  Report Type: Report from Study
  Country: US (occurrence: US)
  Receive Date: 20210908
  Receipt Date: 20210908
  Transmission Date: 20211014
  Serious: Yes (Other)
  Sender: FDA-Public Use
  Company Number: US-MYLANLABS-US2013189877

PATIENT
  Age: 69 Year
  Sex: Female
  Weight: 77 kg

DRUGS (16)
  1. FOLIC ACID. [Concomitant]
     Active Substance: FOLIC ACID
     Indication: VITAMIN SUPPLEMENTATION
     Dosage: 1 MILLIGRAM, QD (1 IN 1 D)
  2. ATENOLOL. [Concomitant]
     Active Substance: ATENOLOL
     Indication: HYPERTENSION
     Dosage: 100 MILLIGRAM, QD (1 IN 1 D)
  3. IBUPROFEN. [Suspect]
     Active Substance: IBUPROFEN
     Dosage: 40 MILLIGRAM
  4. TRAMADOL HYDROCHLORIDE. [Concomitant]
     Active Substance: TRAMADOL HYDROCHLORIDE
     Indication: RHEUMATOID ARTHRITIS
     Dosage: 50 MG (2?3 A DAY), AS NEEDED
  5. BABY ASPIRIN [Concomitant]
     Active Substance: ASPIRIN
     Dosage: 81 MILLIGRAM, QD ( 1 IN 1 D)
  6. HUMIRA [Suspect]
     Active Substance: ADALIMUMAB
     Indication: RHEUMATOID ARTHRITIS
     Dosage: 40 MILLIGRAM (1 IN 2 WK)
     Dates: start: 20130104, end: 20130329
  7. FUROSEMIDE. [Concomitant]
     Active Substance: FUROSEMIDE
     Indication: FLUID IMBALANCE
     Dosage: UNK
  8. PREDNISONE. [Concomitant]
     Active Substance: PREDNISONE
     Dosage: 5 MILLIGRAM
  9. OMEPRAZOLE. [Concomitant]
     Active Substance: OMEPRAZOLE
     Indication: GASTROOESOPHAGEAL REFLUX DISEASE
     Dosage: 20 MILLIGRAM, QD
  10. METHOTREXATE. [Suspect]
     Active Substance: METHOTREXATE
     Indication: RHEUMATOID ARTHRITIS
     Dosage: 15 MILLIGRAM, QW (2.5 MG, 6 TABLETS WEEKLY)
     Dates: start: 201304
  11. METHOTREXATE. [Suspect]
     Active Substance: METHOTREXATE
     Dosage: 2.5 MILLIGRAM, QW (6 TABLETS WEEKLY)
     Dates: start: 201304
  12. LIPITOR [Suspect]
     Active Substance: ATORVASTATIN CALCIUM
     Indication: BLOOD CHOLESTEROL INCREASED
     Dosage: 40 MILLIGRAM, QD (40 MG, ONCE DAILY)
  13. KLOR?CON [Concomitant]
     Active Substance: POTASSIUM CHLORIDE
     Dosage: 20 MILLIGRAM, QD
  14. IBUPROFEN. [Suspect]
     Active Substance: IBUPROFEN
     Indication: PRODUCT USED FOR UNKNOWN INDICATION
     Dosage: UNK
  15. PREDNISONE. [Concomitant]
     Active Substance: PREDNISONE
     Indication: RHEUMATOID ARTHRITIS
     Dosage: 2.5 MILLIGRAM, QD (1 IN 1 D)
  16. TRAMADOL HYDROCHLORIDE. [Concomitant]
     Active Substance: TRAMADOL HYDROCHLORIDE
     Indication: PAIN

REACTIONS (9)
  - Arthralgia [Unknown]
  - Back pain [Unknown]
  - Pain in extremity [Unknown]
  - Hot flush [Unknown]
  - Headache [Unknown]
  - Rheumatoid arthritis [Unknown]
  - Injection site bruising [Unknown]
  - Blood pressure increased [Unknown]
  - Hepatic enzyme increased [Unknown]

NARRATIVE: CASE EVENT DATE: 20130104
